FAERS Safety Report 15775769 (Version 5)
Quarter: 2019Q2

REPORT INFORMATION
  Report Type: Spontaneous
  Country: JP (occurrence: JP)
  Receive Date: 20181231
  Receipt Date: 20190404
  Transmission Date: 20190711
  Serious: Yes (Death, Life-Threatening, Hospitalization)
  Sender: FDA-Public Use
  Company Number: JP-ROCHE-2237687

PATIENT
  Age: 79 Year
  Sex: Male
  Weight: 41 kg

DRUGS (5)
  1. CUBICIN [Concomitant]
     Active Substance: DAPTOMYCIN
  2. OXALIPLATIN. [Suspect]
     Active Substance: OXALIPLATIN
     Indication: GASTRIC CANCER RECURRENT
     Dosage: MOST RECENT DOSE: 06/DEC/2018
     Route: 041
     Dates: start: 20181206
  3. MEROPEN [Concomitant]
     Active Substance: MEROPENEM
  4. ACOALAN [Concomitant]
  5. XELODA [Suspect]
     Active Substance: CAPECITABINE
     Indication: GASTRIC CANCER RECURRENT
     Dosage: 2 WEEKS ADMINISTRATION FOLLOWED BY 1 WEEK REST
     Route: 048
     Dates: start: 20181206, end: 20181215

REACTIONS (10)
  - Pneumonia [Fatal]
  - Hypophagia [Not Recovered/Not Resolved]
  - Febrile neutropenia [Fatal]
  - White blood cell count decreased [Not Recovered/Not Resolved]
  - Dehydration [Not Recovered/Not Resolved]
  - Multiple organ dysfunction syndrome [Fatal]
  - Platelet count decreased [Not Recovered/Not Resolved]
  - Blood pressure decreased [Not Recovered/Not Resolved]
  - Prerenal failure [Not Recovered/Not Resolved]
  - Disseminated intravascular coagulation [Not Recovered/Not Resolved]

NARRATIVE: CASE EVENT DATE: 20181217
